FAERS Safety Report 10903033 (Version 2)
Quarter: 2015Q1

REPORT INFORMATION
  Report Type: Report from Study
  Country: US (occurrence: US)
  Receive Date: 20150311
  Receipt Date: 20150325
  Transmission Date: 20150721
  Serious: Yes (Death, Hospitalization, Other)
  Sender: FDA-Public Use
  Company Number: US-AMGEN-USASL2015020831

PATIENT
  Age: 57 Year
  Sex: Male

DRUGS (17)
  1. BLINCYTO [Suspect]
     Active Substance: BLINATUMOMAB
     Indication: ACUTE LYMPHOCYTIC LEUKAEMIA
     Dosage: UNK
     Route: 065
     Dates: start: 20150226, end: 20150308
  2. MICAFUNGIN [Concomitant]
     Active Substance: MICAFUNGIN
  3. ZOFRAN                             /00955301/ [Concomitant]
     Active Substance: ONDANSETRON HYDROCHLORIDE
  4. DEXAMETHASONE. [Concomitant]
     Active Substance: DEXAMETHASONE
  5. PROTONIX                           /00661201/ [Concomitant]
  6. CYCLOPHOSPHAMIDE. [Concomitant]
     Active Substance: CYCLOPHOSPHAMIDE
  7. DAPTOMYCIN. [Concomitant]
     Active Substance: DAPTOMYCIN
  8. MEROPENEM. [Concomitant]
     Active Substance: MEROPENEM
  9. LASIX [Concomitant]
     Active Substance: FUROSEMIDE
  10. REGULAR INSULIN NOVO NORDISK [Concomitant]
  11. NYSTATIN. [Concomitant]
     Active Substance: NYSTATIN
  12. ACYCLOVIR                          /00587301/ [Concomitant]
     Active Substance: ACYCLOVIR
  13. BACITRACIN. [Concomitant]
     Active Substance: BACITRACIN
     Route: 061
  14. CEFEPIME [Concomitant]
     Active Substance: CEFEPIME\CEFEPIME HYDROCHLORIDE
  15. ATIVAN [Concomitant]
     Active Substance: LORAZEPAM
  16. FLAGYL [Concomitant]
     Active Substance: METRONIDAZOLE\METRONIDAZOLE HYDROCHLORIDE
  17. POTASSIUM [Concomitant]
     Active Substance: POTASSIUM
     Dosage: 20 MEQ, UNK
     Route: 042

REACTIONS (11)
  - Tachypnoea [Unknown]
  - Speech disorder [Not Recovered/Not Resolved]
  - Dyspnoea [Unknown]
  - Death [Fatal]
  - Fatigue [Not Recovered/Not Resolved]
  - Somnolence [Not Recovered/Not Resolved]
  - General physical health deterioration [Unknown]
  - Leukocytosis [Unknown]
  - Unresponsive to stimuli [Not Recovered/Not Resolved]
  - Malaise [Not Recovered/Not Resolved]
  - Nausea [Not Recovered/Not Resolved]

NARRATIVE: CASE EVENT DATE: 201502
